FAERS Safety Report 17847197 (Version 1)
Quarter: 2020Q2

REPORT INFORMATION
  Report Type: Spontaneous
  Country: US (occurrence: BR)
  Receive Date: 20200601
  Receipt Date: 20200601
  Transmission Date: 20200714
  Serious: Yes (Other)
  Sender: FDA-Public Use
  Company Number: BR-BIOMARINAP-BR-2019-123522

PATIENT
  Age: 47 Year
  Sex: Female
  Weight: 46 kg

DRUGS (4)
  1. ALDURAZYME [Suspect]
     Active Substance: LARONIDASE
     Indication: MUCOPOLYSACCHARIDOSIS I
     Dosage: 20 DOSAGE FORM, QOW
     Route: 041
     Dates: start: 2010, end: 20180724
  2. CLONAZEPAM. [Concomitant]
     Active Substance: CLONAZEPAM
     Indication: INSOMNIA
     Dosage: 2 MILLIGRAM
     Dates: start: 2008
  3. MAREVAN [Concomitant]
     Active Substance: WARFARIN SODIUM
     Indication: EMBOLISM VENOUS
     Dosage: 7.5 MILLIGRAM
     Dates: start: 2001
  4. ATENOLOL. [Concomitant]
     Active Substance: ATENOLOL
     Indication: HYPERTENSION
     Dosage: 25 MILLIGRAM
     Dates: start: 2001

REACTIONS (6)
  - Product dose omission [Unknown]
  - Pruritus [Unknown]
  - Unevaluable event [Unknown]
  - Condition aggravated [Unknown]
  - Abdominal pain upper [Unknown]
  - Angioedema [Unknown]

NARRATIVE: CASE EVENT DATE: 20180704
